FAERS Safety Report 23950520 (Version 1)
Quarter: 2024Q2

REPORT INFORMATION
  Report Type: Spontaneous
  Country: CA (occurrence: CA)
  Receive Date: 20240607
  Receipt Date: 20240607
  Transmission Date: 20240716
  Serious: Yes (Other)
  Sender: FDA-Public Use
  Company Number: CA-JNJFOC-20240587174

PATIENT
  Age: 13 Year
  Sex: Male

DRUGS (1)
  1. BALVERSA [Suspect]
     Active Substance: ERDAFITINIB
     Indication: Optic glioma
     Route: 065

REACTIONS (4)
  - Epiphysiolysis [Recovering/Resolving]
  - Onycholysis [Unknown]
  - Hyperphosphataemia [Unknown]
  - Off label use [Unknown]
